FAERS Safety Report 4885856-0 (Version None)
Quarter: 2006Q1

REPORT INFORMATION
  Report Type: 
  Country: None (occurrence: None)
  Receive Date: 20060117
  Receipt Date: 20060105
  Transmission Date: 20060701
  Serious: Yes (Hospitalization)
  Sender: FDA-Public Use
  Company Number: GXKR2006TR00468

PATIENT
  Age: 23 Year
  Sex: Female

DRUGS (8)
  1. DOXORUBICIN (NGX) (DOXORUBICIN) [Suspect]
     Indication: MALIGNANT LYMPHOMA UNCLASSIFIABLE HIGH GRADE
     Dosage: 50 MG/M2, ONCE/SINGLE, INTRAVENOUS - SEE IMAGE
     Route: 042
  2. DOXORUBICIN (NGX) (DOXORUBICIN) [Suspect]
     Indication: MALIGNANT LYMPHOMA UNCLASSIFIABLE HIGH GRADE
     Dosage: 50 MG/M2, ONCE/SINGLE, INTRAVENOUS - SEE IMAGE
     Route: 042
  3. CYCLOPHOSPHAMIDE [Suspect]
     Indication: MALIGNANT LYMPHOMA UNCLASSIFIABLE HIGH GRADE
     Dosage: 750 MG/M2, INTRAVENOUS
     Route: 042
  4. CYCLOPHOSPHAMIDE [Suspect]
     Indication: MALIGNANT LYMPHOMA UNCLASSIFIABLE HIGH GRADE
     Dosage: 750 MG/M2, INTRAVENOUS
     Route: 042
  5. VINCRISTINE [Suspect]
     Indication: MALIGNANT LYMPHOMA UNCLASSIFIABLE HIGH GRADE
     Dosage: 1.4 MG/M2, INTRAVENOUS
     Route: 042
  6. VINCRISTINE [Suspect]
     Indication: MALIGNANT LYMPHOMA UNCLASSIFIABLE HIGH GRADE
     Dosage: 1.4 MG/M2, INTRAVENOUS
     Route: 042
  7. PREDNISONE [Suspect]
     Indication: MALIGNANT LYMPHOMA UNCLASSIFIABLE HIGH GRADE
     Dosage: 100 MG, ONCE/SINGLE, ORAL
     Route: 048
  8. PREDNISONE [Suspect]
     Indication: MALIGNANT LYMPHOMA UNCLASSIFIABLE HIGH GRADE
     Dosage: 100 MG, ONCE/SINGLE, ORAL
     Route: 048

REACTIONS (19)
  - ABDOMINAL PAIN [None]
  - AUTONOMIC NEUROPATHY [None]
  - DIARRHOEA [None]
  - ELECTROLYTE IMBALANCE [None]
  - GASTROINTESTINAL TOXICITY [None]
  - HAEMATOCHEZIA [None]
  - HAEMATOCRIT DECREASED [None]
  - HAEMOGLOBIN DECREASED [None]
  - HYPOCALCAEMIA [None]
  - HYPOKALAEMIA [None]
  - HYPOREFLEXIA [None]
  - ILEUS [None]
  - INAPPROPRIATE ANTIDIURETIC HORMONE SECRETION [None]
  - NEUROPATHY PERIPHERAL [None]
  - ORAL SOFT TISSUE DISORDER [None]
  - OVERDOSE [None]
  - PANCYTOPENIA [None]
  - URINARY INCONTINENCE [None]
  - VISION BLURRED [None]
